FAERS Safety Report 18473111 (Version 1)
Quarter: 2020Q4

REPORT INFORMATION
  Report Type: Spontaneous
  Country: TR (occurrence: TR)
  Receive Date: 20201106
  Receipt Date: 20201106
  Transmission Date: 20210114
  Serious: Yes (Hospitalization)
  Sender: FDA-Public Use
  Company Number: TR-TEVA-2020-TR-1846141

PATIENT
  Age: 36 Year
  Sex: Female

DRUGS (4)
  1. MODAFINIL. [Suspect]
     Active Substance: MODAFINIL
     Indication: DEPRESSION
     Route: 065
  2. DULOXETINE. [Interacting]
     Active Substance: DULOXETINE
     Indication: DEPRESSION
     Route: 065
  3. BLACK COHOSH [Interacting]
     Active Substance: BLACK COHOSH
     Indication: PREMENSTRUAL PAIN
     Dosage: EXTRACT
     Route: 065
  4. BLACK COHOSH [Interacting]
     Active Substance: BLACK COHOSH
     Indication: PREMENSTRUAL DYSPHORIC DISORDER

REACTIONS (2)
  - Mania [Recovered/Resolved]
  - Drug interaction [Unknown]
